FAERS Safety Report 5764829-X (Version None)
Quarter: 2008Q2

REPORT INFORMATION
  Report Type: 
  Country: None (occurrence: None)
  Receive Date: 20080611
  Receipt Date: 20080529
  Transmission Date: 20081010
  Serious: Yes (Other)
  Sender: FDA-Public Use
  Company Number: FR-BRISTOL-MYERS SQUIBB COMPANY-14218812

PATIENT
  Age: 23 Year
  Sex: Male

DRUGS (5)
  1. CYCLOPHOSPHAMIDE [Suspect]
     Indication: BURKITT'S LYMPHOMA
     Route: 065
     Dates: start: 20060101
  2. ONCOVIN [Suspect]
     Indication: BURKITT'S LYMPHOMA
     Route: 065
     Dates: start: 20060101
  3. METHOTREXATE [Suspect]
     Indication: BURKITT'S LYMPHOMA
     Route: 065
     Dates: start: 20060101
  4. ADRIAMYCIN PFS [Suspect]
     Indication: BURKITT'S LYMPHOMA
     Route: 065
     Dates: start: 20060101
  5. PREDNISOLONE [Suspect]
     Indication: BURKITT'S LYMPHOMA
     Route: 065
     Dates: start: 20060101

REACTIONS (2)
  - FEBRILE BONE MARROW APLASIA [None]
  - PERONEAL MUSCULAR ATROPHY [None]
